FAERS Safety Report 13006146 (Version 4)
Quarter: 2017Q3

REPORT INFORMATION
  Report Type: Report from Study
  Country: None (occurrence: US)
  Receive Date: 20161207
  Receipt Date: 20170925
  Transmission Date: 20171127
  Serious: Yes (Other)
  Sender: FDA-Public Use
  Company Number: US-ABBVIE-16K-163-1721044-00

PATIENT
  Age: 64 Year
  Sex: Male

DRUGS (5)
  1. HUMIRA [Suspect]
     Active Substance: ADALIMUMAB
     Indication: RHEUMATOID ARTHRITIS
     Route: 058
     Dates: start: 20160906, end: 2016
  2. HUMIRA [Suspect]
     Active Substance: ADALIMUMAB
     Indication: PSORIATIC ARTHROPATHY
     Dosage: 2 INITIAL PEN
     Route: 058
     Dates: start: 20160830, end: 20160830
  3. METHOTREXATE. [Concomitant]
     Active Substance: METHOTREXATE
     Indication: PRODUCT USED FOR UNKNOWN INDICATION
     Dates: start: 2017
  4. HUMIRA [Suspect]
     Active Substance: ADALIMUMAB
     Route: 058
     Dates: start: 2016, end: 20161129
  5. HUMIRA [Suspect]
     Active Substance: ADALIMUMAB
     Route: 058
     Dates: start: 20170321, end: 2017

REACTIONS (15)
  - Injection site pain [Recovered/Resolved]
  - Peripheral swelling [Unknown]
  - Loss of personal independence in daily activities [Unknown]
  - Oral mucosal blistering [Recovered/Resolved]
  - Intervertebral disc protrusion [Recovered/Resolved]
  - Swelling [Unknown]
  - Pain in extremity [Unknown]
  - Joint swelling [Unknown]
  - Musculoskeletal pain [Unknown]
  - Drug effect decreased [Recovered/Resolved]
  - Neck pain [Unknown]
  - Peripheral swelling [Recovering/Resolving]
  - Device issue [Recovered/Resolved]
  - Musculoskeletal stiffness [Unknown]
  - Arthralgia [Unknown]

NARRATIVE: CASE EVENT DATE: 2016
